FAERS Safety Report 16353280 (Version 1)
Quarter: 2019Q3

REPORT INFORMATION
  Report Type: Spontaneous
  Country: US (occurrence: US)
  Receive Date: 20190523
  Receipt Date: 20190523
  Transmission Date: 20191004
  Serious: No
  Sender: FDA-Public Use
  Company Number: None

PATIENT
  Age: 65 Year
  Sex: Female
  Weight: 113.85 kg

DRUGS (9)
  1. CENTRUM VITAMINS LIQUID [Concomitant]
     Active Substance: VITAMINS
  2. COLACE [Concomitant]
     Active Substance: DOCUSATE SODIUM
  3. VITAMIN D [Concomitant]
     Active Substance: VITAMIN D NOS
  4. POTS CHLORIDE [Concomitant]
  5. HYDROCHLOROTHIAZIDE. [Concomitant]
     Active Substance: HYDROCHLOROTHIAZIDE
  6. ASPIRIN. [Concomitant]
     Active Substance: ASPIRIN
  7. TRAMADOL. [Concomitant]
     Active Substance: TRAMADOL
  8. LABETALOL HCL [Suspect]
     Active Substance: LABETALOL HYDROCHLORIDE
     Indication: HYPERTENSION
     Dosage: ?          QUANTITY:60 TABLET(S);?
     Route: 048
     Dates: start: 20190403, end: 20190515
  9. DILTIAZEM. [Concomitant]
     Active Substance: DILTIAZEM

REACTIONS (6)
  - Hypersensitivity [None]
  - Haemoptysis [None]
  - Bronchitis [None]
  - Dysphonia [None]
  - Throat tightness [None]
  - Viral infection [None]

NARRATIVE: CASE EVENT DATE: 20190406
